FAERS Safety Report 7244607-5 (Version None)
Quarter: 2011Q1

REPORT INFORMATION
  Report Type: 
  Country: None (occurrence: None)
  Receive Date: 20110125
  Receipt Date: 20100204
  Transmission Date: 20110831
  Serious: No
  Sender: FDA-Public Use
  Company Number: US-MYLANLABS-2010S1001944

PATIENT
  Age: 48 Year
  Sex: Female

DRUGS (3)
  1. ZONISAMIDE [Suspect]
     Route: 048
     Dates: start: 20100128
  2. TIZANIDINE [Concomitant]
     Indication: MUSCLE RELAXANT THERAPY
  3. TRAZODONE [Concomitant]

REACTIONS (2)
  - HEADACHE [None]
  - REACTION TO DRUG EXCIPIENTS [None]
